FAERS Safety Report 15139193 (Version 1)
Quarter: 2018Q3

REPORT INFORMATION
  Report Type: Spontaneous
  Country: PR (occurrence: PR)
  Receive Date: 20180713
  Receipt Date: 20180713
  Transmission Date: 20181010
  Serious: Yes (Hospitalization)
  Sender: FDA-Public Use
  Company Number: PR-PFIZER INC-2016432102

PATIENT
  Age: 50 Year
  Sex: Female
  Weight: 93.88 kg

DRUGS (9)
  1. LYRICA [Suspect]
     Active Substance: PREGABALIN
     Dosage: 150 MG, 2X/DAY
     Route: 048
     Dates: start: 2015, end: 2018
  2. METHOTREXATE. [Concomitant]
     Active Substance: METHOTREXATE
     Dosage: 6 DF, WEEKLY
  3. ZANAFLEX [Concomitant]
     Active Substance: TIZANIDINE HYDROCHLORIDE
     Dosage: 4 MG, UNK
  4. FLECTOR [Concomitant]
     Active Substance: DICLOFENAC EPOLAMINE
     Dosage: 1.3 %, AS NEEDED (1 Q 12 HOURS)
     Route: 061
  5. FOLIC ACID. [Concomitant]
     Active Substance: FOLIC ACID
     Dosage: 1 UG, DAILY
  6. LIORESAL [Concomitant]
     Active Substance: BACLOFEN
     Dosage: 10 UG, AS NEEDED
  7. METHOXSALEN. [Concomitant]
     Active Substance: METHOXSALEN
     Dosage: 10 MG, UNK
  8. PAXIL [Concomitant]
     Active Substance: PAROXETINE HYDROCHLORIDE
     Dosage: 20 UG, UNK
  9. KLONOPIN [Concomitant]
     Active Substance: CLONAZEPAM
     Dosage: 1 UG, UNK

REACTIONS (2)
  - Pain [Unknown]
  - Gait disturbance [Unknown]
